FAERS Safety Report 23843066 (Version 1)
Quarter: 2024Q2

REPORT INFORMATION
  Report Type: Spontaneous
  Country: CA (occurrence: CA)
  Receive Date: 20240510
  Receipt Date: 20240510
  Transmission Date: 20240715
  Serious: Yes (Other)
  Sender: FDA-Public Use
  Company Number: CA-JNJFOC-20240514570

PATIENT
  Sex: Female

DRUGS (3)
  1. SIMPONI [Suspect]
     Active Substance: GOLIMUMAB
     Indication: Arthritis
     Dosage: WOULD HAVE BEEN THEIR NEXT DOSE IN DEC-2019
     Route: 058
     Dates: end: 201911
  2. SIMPONI [Suspect]
     Active Substance: GOLIMUMAB
  3. XELJANZ [Suspect]
     Active Substance: TOFACITINIB CITRATE
     Indication: Product used for unknown indication
     Route: 065
     Dates: start: 202001

REACTIONS (10)
  - Carpal tunnel syndrome [Unknown]
  - Hernia [Unknown]
  - Cyst [Unknown]
  - Injection site haemorrhage [Unknown]
  - Gait disturbance [Unknown]
  - Memory impairment [Unknown]
  - Erythema [Unknown]
  - Peripheral swelling [Unknown]
  - Insomnia [Unknown]
  - Injection site pain [Unknown]
